FAERS Safety Report 6189179-1 (Version None)
Quarter: 2009Q2

REPORT INFORMATION
  Report Type: 
  Country: None (occurrence: None)
  Receive Date: 20090513
  Receipt Date: 20090504
  Transmission Date: 20091009
  Serious: Yes (Hospitalization)
  Sender: FDA-Public Use
  Company Number: GR-ABBOTT-09P-066-0562390-00

PATIENT
  Age: 51 Year
  Sex: Male

DRUGS (10)
  1. ZEMPLAR [Suspect]
     Indication: HYPERPARATHYROIDISM SECONDARY
     Route: 042
     Dates: start: 20070307, end: 20090217
  2. ZEMPLAR [Suspect]
     Route: 042
  3. KARVEA [Concomitant]
     Indication: HYPERTENSION
     Route: 048
     Dates: start: 20041101
  4. RENAGEL [Concomitant]
     Indication: BLOOD PHOSPHORUS INCREASED
     Route: 048
     Dates: start: 20061101
  5. FORSENOL [Concomitant]
     Indication: BLOOD PHOSPHORUS INCREASED
     Route: 048
     Dates: start: 20070301
  6. CALCIFOLIN [Concomitant]
     Indication: RENAL FAILURE CHRONIC
     Route: 048
     Dates: start: 20090105
  7. RAPTOR [Concomitant]
     Indication: HYPERLIPIDAEMIA
     Route: 048
     Dates: start: 20090105
  8. HIPNOSTEDON [Concomitant]
     Indication: INSOMNIA
     Route: 048
  9. CLOPIDOGREL [Concomitant]
     Indication: RENAL TRANSPLANT
     Route: 048
  10. SALOSPIR [Concomitant]
     Indication: RENAL TRANSPLANT
     Route: 048

REACTIONS (2)
  - MEDICAL DEVICE COMPLICATION [None]
  - PAIN [None]
